FAERS Safety Report 9974304 (Version 1)
Quarter: 2014Q1

REPORT INFORMATION
  Report Type: Report from Study
  Country: US (occurrence: US)
  Receive Date: 20140306
  Receipt Date: 20140306
  Transmission Date: 20141002
  Serious: No
  Sender: FDA-Public Use
  Company Number: US-ABBVIE-13P-163-1158912-00

PATIENT
  Age: 53 Year
  Sex: Female
  Weight: 59.02 kg

DRUGS (6)
  1. HUMIRA [Suspect]
     Indication: SARCOIDOSIS
     Dates: start: 201308
  2. PREDNISONE [Concomitant]
     Indication: SARCOIDOSIS
  3. PROZAC [Concomitant]
     Indication: DEPRESSION
  4. OMEPRAZOLE [Concomitant]
     Indication: GASTROOESOPHAGEAL REFLUX DISEASE
  5. CALCIUM [Concomitant]
     Indication: SUPPLEMENTATION THERAPY
  6. VITAMIN D [Concomitant]
     Indication: SUPPLEMENTATION THERAPY

REACTIONS (2)
  - Sinusitis [Recovered/Resolved]
  - Injection site erythema [Recovered/Resolved]
